FAERS Safety Report 9720477 (Version 1)
Quarter: 2013Q4

REPORT INFORMATION
  Report Type: Spontaneous
  Country: US (occurrence: US)
  Receive Date: 20131129
  Receipt Date: 20131129
  Transmission Date: 20140711
  Serious: No
  Sender: FDA-Public Use
  Company Number: US-009507513-1311USA011595

PATIENT
  Sex: Female
  Weight: 72.11 kg

DRUGS (1)
  1. IMPLANON [Suspect]
     Indication: DYSMENORRHOEA
     Dosage: 1 DF, UNK
     Route: 059
     Dates: start: 200804

REACTIONS (6)
  - Syncope [Not Recovered/Not Resolved]
  - Jaundice [Recovered/Resolved]
  - Dysmenorrhoea [Not Recovered/Not Resolved]
  - Menorrhagia [Not Recovered/Not Resolved]
  - Metrorrhagia [Not Recovered/Not Resolved]
  - Incorrect drug administration duration [Unknown]
